FAERS Safety Report 6702815-3 (Version None)
Quarter: 2010Q2

REPORT INFORMATION
  Report Type: 
  Country: None (occurrence: None)
  Receive Date: 20100429
  Receipt Date: 20100420
  Transmission Date: 20101027
  Serious: Yes (Other)
  Sender: FDA-Public Use
  Company Number: ZA-ABBOTT-10P-143-0639855-00

PATIENT

DRUGS (3)
  1. HUMIRA [Suspect]
     Indication: CROHN'S DISEASE
     Route: 058
     Dates: start: 20100404, end: 20100407
  2. HUMIRA [Suspect]
     Route: 058
     Dates: start: 20100310, end: 20100310
  3. HUMIRA [Suspect]
     Route: 058
     Dates: start: 20100324, end: 20100324

REACTIONS (2)
  - EYE SWELLING [None]
  - HEADACHE [None]
